FAERS Safety Report 9230351 (Version 2)
Quarter: 2013Q2

REPORT INFORMATION
  Report Type: Spontaneous
  Country: CL (occurrence: CL)
  Receive Date: 20130415
  Receipt Date: 20130422
  Transmission Date: 20140414
  Serious: Yes (Hospitalization, Other)
  Sender: FDA-Public Use
  Company Number: PHHY2013CL035832

PATIENT
  Age: 37 Year
  Sex: Female

DRUGS (2)
  1. LEPONEX [Suspect]
     Indication: BIPOLAR DISORDER
     Dosage: 300 MG, QD
     Dates: start: 20110516
  2. LEPONEX [Suspect]
     Indication: OFF LABEL USE

REACTIONS (2)
  - Concomitant disease aggravated [Recovered/Resolved]
  - Pain [Recovered/Resolved]
